FAERS Safety Report 16359406 (Version 2)
Quarter: 2019Q2

REPORT INFORMATION
  Report Type: Spontaneous
  Country: KR (occurrence: KR)
  Receive Date: 20190528
  Receipt Date: 20190603
  Transmission Date: 20190711
  Serious: Yes (Other)
  Sender: FDA-Public Use
  Company Number: KR-SA-2019SA141057

PATIENT
  Age: 51 Year
  Sex: Male

DRUGS (19)
  1. AMBROXOL HYDROCHLORIDE [Suspect]
     Active Substance: AMBROXOL HYDROCHLORIDE
     Indication: PNEUMONIA
     Dosage: UNK
     Dates: start: 20180118
  2. PARACETAMOL [Suspect]
     Active Substance: ACETAMINOPHEN
     Route: 048
     Dates: start: 20180302
  3. PARACETAMOL [Suspect]
     Active Substance: ACETAMINOPHEN
     Indication: PNEUMONIA
     Dates: start: 20180118
  4. L-CARBOCYSTEINE [Suspect]
     Active Substance: CARBOCYSTEINE
     Indication: ANTITUSSIVE THERAPY
     Route: 048
     Dates: start: 20180302
  5. PANCOLD S [Suspect]
     Active Substance: ACETAMINOPHEN\CAFFEINE\CHLORPHENIRAMINE\GUAIFENESIN\METHYLEPHEDRINE HYDROCHLORIDE, DL-
     Dosage: TAKING FOR SEVERAL DAYS
     Route: 048
     Dates: start: 2018
  6. RANITIDINE HYDROCHLORIDE. [Suspect]
     Active Substance: RANITIDINE HYDROCHLORIDE
     Dosage: 2 DF, BID
     Route: 048
     Dates: start: 20180109
  7. RHINATHIOL [CARBOCYSTEINE] [Suspect]
     Active Substance: CARBOCYSTEINE
     Indication: PNEUMONIA
     Dosage: UNK
     Dates: start: 20180118
  8. METFORMIN HYDROCHLORIDE. [Suspect]
     Active Substance: METFORMIN HYDROCHLORIDE
     Dosage: 1 DF, QD
     Route: 048
     Dates: start: 20180109
  9. CEFTRIAXONE SODIUM HYDRATE [Suspect]
     Active Substance: CEFTRIAXONE SODIUM
     Indication: PNEUMONIA
     Dosage: UNK
     Dates: start: 20180118
  10. TWYNSTA [Suspect]
     Active Substance: AMLODIPINE BESYLATE\TELMISARTAN
     Dosage: TWYNSTA TAB. 80/5MG (AMLODIPINE BESYLATE 6.935 MG, TELMISARTAN 80 MG)
     Route: 048
     Dates: start: 20180109
  11. JANUVIA [Suspect]
     Active Substance: SITAGLIPTIN PHOSPHATE
     Dosage: 1 DF, QD
     Route: 048
     Dates: start: 20180109
  12. BROMHEXINE HYDROCHLORIDE [Suspect]
     Active Substance: BROMHEXINE HYDROCHLORIDE
     Indication: ANTITUSSIVE THERAPY
     Route: 048
     Dates: start: 20180302
  13. BISOLVON [Suspect]
     Active Substance: BROMHEXINE HYDROCHLORIDE
     Indication: PNEUMONIA
     Dosage: UNK
     Dates: start: 20180118
  14. PARACETAMOL [Suspect]
     Active Substance: ACETAMINOPHEN
     Dosage: ER
     Route: 048
     Dates: start: 20180302
  15. GLIATILIN [Suspect]
     Active Substance: CHOLINE ALFOSCERATE
     Dosage: 2 DF, BID
     Route: 048
     Dates: start: 20180109
  16. ZENTALAMIN [Suspect]
     Active Substance: AMINO ACIDS
     Indication: PNEUMONIA
     Dosage: UNK
     Dates: start: 20180118
  17. PARACETAMOL [Suspect]
     Active Substance: ACETAMINOPHEN
     Dosage: 300 MG
  18. ACETYLSALICYLIC ACID [Suspect]
     Active Substance: ASPIRIN
     Dosage: ASPIRIN ENTERIC GR. 120.98 MG
     Route: 048
     Dates: start: 20180109
  19. MUCOSTA [Suspect]
     Active Substance: REBAMIPIDE
     Dosage: 2 DF, BID
     Route: 048
     Dates: start: 20180109

REACTIONS (2)
  - Self-medication [Recovered/Resolved]
  - Hepatic function abnormal [Recovered/Resolved]

NARRATIVE: CASE EVENT DATE: 20180303
